FAERS Safety Report 24097625 (Version 1)
Quarter: 2024Q3

REPORT INFORMATION
  Report Type: Report from Study
  Country: CA (occurrence: CA)
  Receive Date: 20240716
  Receipt Date: 20240716
  Transmission Date: 20241016
  Serious: Yes (Other)
  Sender: JOHNSON AND JOHNSON
  Company Number: CA-JNJFOC-20240732444

PATIENT
  Age: 16 Year
  Sex: Male
  Weight: 57 kg

DRUGS (2)
  1. REMICADE [Suspect]
     Active Substance: INFLIXIMAB
     Indication: Crohn^s disease
     Route: 042
     Dates: start: 20230201
  2. REMICADE [Suspect]
     Active Substance: INFLIXIMAB
     Dosage: 0-2-6 THEN Q. 4 WEEKS
     Route: 042
     Dates: start: 20230201

REACTIONS (4)
  - Crohn^s disease [Unknown]
  - Drug level decreased [Unknown]
  - Incorrect drug administration rate [Unknown]
  - Off label use [Unknown]

NARRATIVE: CASE EVENT DATE: 20240710
